FAERS Safety Report 5734444-2 (Version None)
Quarter: 2008Q2

REPORT INFORMATION
  Report Type: 
  Country: None (occurrence: None)
  Receive Date: 20080508
  Receipt Date: 20080508
  Transmission Date: 20081010
  Serious: Yes (Life-Threatening)
  Sender: FDA-Public Use
  Company Number: None

PATIENT
  Age: 35 Year
  Sex: Female

DRUGS (2)
  1. FENTANYL-100 [Suspect]
     Dosage: 100MCG
  2. MIDAZOLAM HCL [Suspect]
     Dosage: 2MG

REACTIONS (1)
  - RESPIRATORY DEPRESSION [None]
